FAERS Safety Report 11065276 (Version 2)
Quarter: 2015Q2

REPORT INFORMATION
  Report Type: Spontaneous
  Country: US (occurrence: US)
  Receive Date: 20150425
  Receipt Date: 20150525
  Transmission Date: 20150821
  Serious: No
  Sender: FDA-Public Use
  Company Number: US-JNJFOC-20131201836

PATIENT
  Age: 36 Year
  Sex: Female
  Weight: 63.5 kg

DRUGS (5)
  1. STELARA [Suspect]
     Active Substance: USTEKINUMAB
     Indication: CROHN^S DISEASE
     Dosage: SELF ADMINISTRATION OF USTEKINUMAB INJECTION
     Route: 058
     Dates: start: 20131130
  2. STELARA [Suspect]
     Active Substance: USTEKINUMAB
     Indication: CROHN^S DISEASE
     Dosage: SELF ADMINISTRATION OF USTEKINUMAB INJECTION
     Route: 058
     Dates: start: 20131102
  3. STELARA [Suspect]
     Active Substance: USTEKINUMAB
     Indication: PSORIASIS
     Dosage: SELF ADMINISTRATION OF USTEKINUMAB INJECTION
     Route: 058
     Dates: start: 20131102
  4. STELARA [Suspect]
     Active Substance: USTEKINUMAB
     Indication: PSORIASIS
     Dosage: SELF ADMINISTRATION OF USTEKINUMAB INJECTION
     Route: 058
     Dates: start: 20131130
  5. VITAMIN B12 [Concomitant]
     Active Substance: CYANOCOBALAMIN
     Route: 065

REACTIONS (4)
  - Product use issue [Unknown]
  - Incorrect dose administered [Not Recovered/Not Resolved]
  - Syringe issue [Recovered/Resolved]
  - Psoriasis [Not Recovered/Not Resolved]

NARRATIVE: CASE EVENT DATE: 201311
